FAERS Safety Report 6495052-1 (Version None)
Quarter: 2009Q4

REPORT INFORMATION
  Report Type: 
  Country: None (occurrence: None)
  Receive Date: 20091214
  Receipt Date: 20090423
  Transmission Date: 20100525
  Serious: Yes (Hospitalization)
  Sender: FDA-Public Use
  Company Number: US-BRISTOL-MYERS SQUIBB COMPANY-14599351

PATIENT
  Sex: Male

DRUGS (6)
  1. ABILIFY [Suspect]
     Indication: MANIA
     Dosage: ADDITONALY 9.75MG
     Route: 030
  2. ABILIFY [Suspect]
     Indication: AGGRESSION
     Dosage: ADDITONALY 9.75MG
     Route: 030
  3. ABILIFY [Suspect]
     Indication: AGITATION
     Dosage: ADDITONALY 9.75MG
     Route: 030
  4. HALDOL [Concomitant]
     Indication: MANIA
  5. HALDOL [Concomitant]
     Indication: AGGRESSION
  6. HALDOL [Concomitant]
     Indication: AGITATION

REACTIONS (1)
  - CONVULSION [None]
